FAERS Safety Report 7334333-6 (Version None)
Quarter: 2011Q1

REPORT INFORMATION
  Report Type: 
  Country: None (occurrence: None)
  Receive Date: 20110307
  Receipt Date: 20110125
  Transmission Date: 20110831
  Serious: Yes (Death)
  Sender: FDA-Public Use
  Company Number: US-TYCO HEALTHCARE/MALLINCKRODT-T201100427

PATIENT
  Age: 50 Year
  Sex: Female

DRUGS (5)
  1. ANTIPSYCHOTICS [Suspect]
     Route: 048
  2. HYDROCODONE/ACETAMINOPHEN [Suspect]
     Route: 048
  3. WARFARIN [Suspect]
     Route: 048
  4. METHAMPHETAMINE [Suspect]
     Route: 048
  5. ALPRAZOLAM [Suspect]
     Route: 048

REACTIONS (1)
  - COMPLETED SUICIDE [None]
